FAERS Safety Report 25359616 (Version 1)
Quarter: 2025Q2

REPORT INFORMATION
  Report Type: Spontaneous
  Country: None (occurrence: GB)
  Receive Date: 20250526
  Receipt Date: 20250526
  Transmission Date: 20250717
  Serious: Yes (Other)
  Sender: SHIELD THERAPEUTICS
  Company Number: GB-MHRA-TPP18978005C7016075YC1738239177278

PATIENT
  Age: 61 Year
  Sex: Female

DRUGS (15)
  1. FERRIC MALTOL [Suspect]
     Active Substance: FERRIC MALTOL
     Indication: Product used for unknown indication
     Dosage: 30 MG,BID (4 HOURS APART FROM LEVOT)
     Route: 065
     Dates: start: 20250121, end: 20250128
  2. TRAMADOL [Concomitant]
     Active Substance: TRAMADOL
     Dosage: 2 DOSAGE FORM, TAKE TWO AT NIGHT
     Route: 065
     Dates: start: 20241008
  3. Balneum [Concomitant]
     Route: 065
     Dates: start: 20241204, end: 20241218
  4. BETAMETHASONE VALERATE [Concomitant]
     Active Substance: BETAMETHASONE VALERATE
     Route: 065
     Dates: start: 20241204, end: 20250101
  5. TOCILIZUMAB [Concomitant]
     Active Substance: TOCILIZUMAB
     Route: 065
     Dates: start: 20241217
  6. BECLOMETHASONE\FORMOTEROL [Concomitant]
     Active Substance: BECLOMETHASONE\FORMOTEROL
     Dosage: 2 DOSAGE FORM, BID, TWO PUFFS TWICE DAILY
     Route: 065
     Dates: start: 20230217
  7. ADIZEM [Concomitant]
     Active Substance: DILTIAZEM HYDROCHLORIDE
     Dosage: 1 DOSAGE FORM, QD
     Route: 065
     Dates: start: 20240118
  8. AEROCHAMBER PLUS [Concomitant]
     Route: 065
     Dates: start: 20240118
  9. CANDESARTAN [Concomitant]
     Active Substance: CANDESARTAN
     Dosage: 1 DOSAGE FORM, QD
     Route: 065
     Dates: start: 20240118
  10. DAPAGLIFLOZIN [Concomitant]
     Active Substance: DAPAGLIFLOZIN
     Dosage: 1 DOSAGE FORM, QD
     Route: 065
     Dates: start: 20240118
  11. LANSOPRAZOLE [Concomitant]
     Active Substance: LANSOPRAZOLE
     Dosage: 1 DOSAGE FORM, BID, AKE ONE TWICE A DAY (DOSE INCREASED BY YORK HO)
     Route: 065
     Dates: start: 20240118
  12. LEVOTHYROXINE [Concomitant]
     Active Substance: LEVOTHYROXINE
     Dosage: 1 DOSAGE FORM, QD, TAKE ONE EACH MORNING
     Route: 065
     Dates: start: 20240118
  13. METFORMIN [Concomitant]
     Active Substance: METFORMIN HYDROCHLORIDE
     Dosage: 2 DOSAGE FORM, BID, TAKE 2 TWICE DAILY
     Route: 065
     Dates: start: 20240118
  14. ALBUTEROL [Concomitant]
     Active Substance: ALBUTEROL
     Route: 065
     Dates: start: 20240701
  15. CODEINE PHOSPHATE [Concomitant]
     Active Substance: CODEINE PHOSPHATE
     Dosage: 1 DOSAGE FORM, QID
     Route: 065
     Dates: start: 20240829

REACTIONS (2)
  - Malaise [Recovered/Resolved]
  - Abdominal pain [Recovered/Resolved]

NARRATIVE: CASE EVENT DATE: 20250101
